FAERS Safety Report 24129589 (Version 2)
Quarter: 2024Q3

REPORT INFORMATION
  Report Type: Spontaneous
  Country: ZA (occurrence: ZA)
  Receive Date: 20240724
  Receipt Date: 20240806
  Transmission Date: 20241017
  Serious: Yes (Other)
  Sender: CELLTRION
  Company Number: ZA-ADCOCK INGRAM-2024ZA016532

PATIENT

DRUGS (2)
  1. INFLIXIMAB [Suspect]
     Active Substance: INFLIXIMAB
     Indication: Ankylosing spondylitis
     Dosage: 700 MG 7 WEEKLY INTERVALS
     Route: 042
     Dates: start: 20240510
  2. INFLIXIMAB [Suspect]
     Active Substance: INFLIXIMAB
     Dosage: 700 MG 7 WEEKLY INTERVALS
     Route: 042
     Dates: start: 20240628

REACTIONS (5)
  - Ankylosing spondylitis [Unknown]
  - Mobility decreased [Unknown]
  - Back pain [Unknown]
  - Headache [Unknown]
  - Therapeutic response changed [Unknown]

NARRATIVE: CASE EVENT DATE: 20240628
